FAERS Safety Report 8451744 (Version 2)
Quarter: 2012Q4

REPORT INFORMATION
  Report Type: 
  Country: US (occurrence: US)
  Receive Date: 20120309
  Receipt Date: 20120918
  Transmission Date: 20130627
  Serious: Yes (Hospitalization)
  Sender: FDA-Public Use
  Company Number: US-B.I. PHARMACEUTICALS,INC./RIDGEFIELD-2012-BP-04368BP

PATIENT
  Age: 54 Year
  Sex: Male

DRUGS (11)
  1. PRADAXA [Suspect]
     Indication: ATRIAL FIBRILLATION
     Dosage: 150 mg
     Route: 048
     Dates: start: 20120117, end: 20120122
  2. PRADAXA [Suspect]
     Indication: CARDIAC DISORDER
  3. HYDRALAZINE [Concomitant]
     Indication: CARDIAC DISORDER
     Dosage: 100 mg
     Route: 048
  4. CARVEDILOL [Concomitant]
     Indication: CARDIAC DISORDER
     Dosage: 50 mg
     Route: 048
  5. ISOSORBIDE [Concomitant]
     Indication: CARDIAC DISORDER
     Dosage: 60 mg
     Route: 048
  6. LASIX [Concomitant]
     Indication: CARDIAC DISORDER
     Dosage: 40 mg
     Route: 048
     Dates: start: 2011
  7. LASIX [Concomitant]
     Indication: FLUID RETENTION
  8. AMLODIPINE [Concomitant]
     Indication: CARDIAC DISORDER
     Dosage: 10 mg
     Route: 048
     Dates: end: 201202
  9. MULTIVITAMIN [Concomitant]
     Indication: PROPHYLAXIS
     Route: 048
  10. METOPROLOL TARTRATE [Concomitant]
     Indication: CARDIAC DISORDER
     Dosage: 200 mg
     Route: 048
     Dates: start: 2011
  11. ALDACTONE [Concomitant]
     Indication: FLUID RETENTION
     Dosage: 25 mg
     Route: 048
     Dates: start: 2011

REACTIONS (1)
  - Rectal haemorrhage [Recovered/Resolved]
